FAERS Safety Report 11225305 (Version 1)
Quarter: 2015Q2

REPORT INFORMATION
  Report Type: Spontaneous
  Country: HR (occurrence: HR)
  Receive Date: 20150629
  Receipt Date: 20150629
  Transmission Date: 20150821
  Serious: Yes (Hospitalization, Other)
  Sender: FDA-Public Use
  Company Number: HR-GE HEALTHCARE MEDICAL DIAGNOSTICS-VISP-E2B_00000129

PATIENT
  Age: 72 Year
  Sex: Female
  Weight: 80 kg

DRUGS (2)
  1. VISIPAQUE [Suspect]
     Active Substance: IODIXANOL
     Indication: JAUNDICE
     Route: 042
     Dates: start: 20150610, end: 20150610
  2. VISIPAQUE [Suspect]
     Active Substance: IODIXANOL
     Indication: DIAGNOSTIC PROCEDURE

REACTIONS (3)
  - Stridor [Unknown]
  - Hypotension [Unknown]
  - Loss of consciousness [Unknown]

NARRATIVE: CASE EVENT DATE: 20150610
